FAERS Safety Report 4809139-X (Version None)
Quarter: 2005Q4

REPORT INFORMATION
  Report Type: 
  Country: None (occurrence: None)
  Receive Date: 20051025
  Receipt Date: 20050705
  Transmission Date: 20060501
  Serious: Yes (Hospitalization)
  Sender: FDA-Public Use
  Company Number: PHNU2005DE02471

PATIENT
  Age: 18 Year
  Sex: Male
  Weight: 76 kg

DRUGS (3)
  1. CERTICAN [Suspect]
     Dosage: 4.5 MG, QD
     Route: 048
     Dates: start: 20040701
  2. CERTICAN [Suspect]
     Dosage: 0.5 MG, QD
     Route: 048
  3. MYFORTIC [Suspect]
     Dosage: 360 MG, QD
     Route: 048

REACTIONS (5)
  - ANAEMIA [None]
  - LEUKOPENIA [None]
  - PANCYTOPENIA [None]
  - PNEUMONIA [None]
  - PNEUMONITIS [None]
